FAERS Safety Report 4541005-X (Version None)
Quarter: 2004Q4

REPORT INFORMATION
  Report Type: 
  Country: None (occurrence: None)
  Receive Date: 20041229
  Receipt Date: 20040824
  Transmission Date: 20050328
  Serious: Yes (Hospitalization, Other)
  Sender: FDA-Public Use
  Company Number: US-AMGEN-US088182

PATIENT
  Sex: Male
  Weight: 72 kg

DRUGS (15)
  1. NEULASTA [Suspect]
     Indication: MYELODYSPLASTIC SYNDROME
     Route: 058
     Dates: start: 20040309, end: 20040817
  2. FLOMAX [Concomitant]
  3. EFFEXOR [Concomitant]
  4. PROTONIX [Concomitant]
  5. MULTI-VITAMINS [Concomitant]
  6. ARANESP [Concomitant]
     Indication: MYELODYSPLASTIC SYNDROME
     Dates: start: 20040806
  7. CIPRO [Concomitant]
  8. VALTREX [Concomitant]
  9. ACYCLOVIR [Concomitant]
     Route: 042
  10. SPORANOX [Concomitant]
  11. VIDAZA [Concomitant]
     Dates: start: 20041011, end: 20041017
  12. IDARUBICIN [Concomitant]
     Dates: start: 20041118, end: 20041120
  13. ARA-C [Concomitant]
     Dates: start: 20040206
  14. NEUPOGEN [Concomitant]
     Dates: start: 20040214, end: 20040305
  15. PROCRIT [Concomitant]

REACTIONS (12)
  - ABDOMINAL PAIN [None]
  - ANAEMIA [None]
  - DISEASE RECURRENCE [None]
  - GASTRIC HAEMORRHAGE [None]
  - HEADACHE [None]
  - MYALGIA [None]
  - NEUTROPENIA [None]
  - PYREXIA [None]
  - REFRACTORY ANAEMIA [None]
  - SPLENIC RUPTURE [None]
  - WHITE BLOOD CELL COUNT DECREASED [None]
  - WHITE BLOOD CELL COUNT INCREASED [None]
